FAERS Safety Report 16140139 (Version 3)
Quarter: 2019Q2

REPORT INFORMATION
  Report Type: Spontaneous
  Country: US (occurrence: US)
  Receive Date: 20190331
  Receipt Date: 20190526
  Transmission Date: 20190711
  Serious: Yes (Hospitalization)
  Sender: FDA-Public Use
  Company Number: US-JNJFOC-20190307102

PATIENT
  Age: 36 Year
  Sex: Female

DRUGS (1)
  1. INVEGA SUSTENNA [Suspect]
     Active Substance: PALIPERIDONE PALMITATE
     Indication: PRODUCT USED FOR UNKNOWN INDICATION
     Route: 030
     Dates: start: 20190124

REACTIONS (4)
  - Drug ineffective [Unknown]
  - Vomiting [Recovered/Resolved]
  - Self-medication [Unknown]
  - Injection site swelling [Recovered/Resolved]

NARRATIVE: CASE EVENT DATE: 201902
